FAERS Safety Report 10048935 (Version 2)
Quarter: 2014Q1

REPORT INFORMATION
  Report Type: Report from Study
  Country: US (occurrence: US)
  Receive Date: 20140331
  Receipt Date: 20140331
  Transmission Date: 20141002
  Serious: Yes (Other)
  Sender: FDA-Public Use
  Company Number: US-ABBVIE-14P-163-1209345-00

PATIENT
  Sex: Female
  Weight: 99.88 kg

DRUGS (7)
  1. LUPRON DEPOT-PED [Suspect]
     Indication: PRECOCIOUS PUBERTY
     Dates: start: 199910, end: 200504
  2. LUPRON DEPOT-PED [Suspect]
  3. ADVAIR [Suspect]
     Indication: ASTHMA
     Dates: start: 199910
  4. NEBULIZERS [Concomitant]
     Indication: PRODUCT USED FOR UNKNOWN INDICATION
     Dosage: AS A CHILD
  5. INHALERS [Concomitant]
     Indication: PRODUCT USED FOR UNKNOWN INDICATION
     Dosage: AS A CHILD
  6. ALBUTEROL [Concomitant]
     Indication: ASTHMA
  7. ALBUTEROL [Concomitant]
     Indication: ASTHMA

REACTIONS (12)
  - Middle ear effusion [Recovered/Resolved]
  - Abdominal pain upper [Recovered/Resolved]
  - Vomiting [Recovered/Resolved]
  - Meniscus injury [Recovered/Resolved]
  - Limb deformity [Recovered/Resolved]
  - Pain [Not Recovered/Not Resolved]
  - Menstrual disorder [Not Recovered/Not Resolved]
  - Weight gain poor [Not Recovered/Not Resolved]
  - Depression [Not Recovered/Not Resolved]
  - Activities of daily living impaired [Unknown]
  - Bone disorder [Recovered/Resolved]
  - Anxiety [Not Recovered/Not Resolved]
